FAERS Safety Report 6438841-1 (Version None)
Quarter: 2009Q4

REPORT INFORMATION
  Report Type: 
  Country: None (occurrence: None)
  Receive Date: 20091110
  Receipt Date: 20091102
  Transmission Date: 20100525
  Serious: Yes (Hospitalization)
  Sender: FDA-Public Use
  Company Number: 2009US000040

PATIENT
  Age: 85 Year

DRUGS (2)
  1. ENTEREG [Suspect]
     Indication: POSTOPERATIVE ILEUS
     Dosage: 12 MG; PO
     Route: 048
     Dates: start: 20090325, end: 20090329
  2. MORPHINE [Concomitant]

REACTIONS (1)
  - POSTOPERATIVE ILEUS [None]
